FAERS Safety Report 9386011 (Version 1)
Quarter: 2013Q3

REPORT INFORMATION
  Report Type: Spontaneous
  Country: FR (occurrence: FR)
  Receive Date: 20130705
  Receipt Date: 20130705
  Transmission Date: 20140515
  Serious: Yes (Hospitalization)
  Sender: FDA-Public Use
  Company Number: FR-BAXTER-2013BAX024954

PATIENT
  Age: 63 Year
  Sex: Female

DRUGS (9)
  1. ENDOXAN 2000 MG, LYOPHILISAT POUR SOLUTION INJECTABLE [Suspect]
     Indication: PRODUCT USED FOR UNKNOWN INDICATION
     Route: 042
     Dates: start: 20090908, end: 20091222
  2. STEREOCYT [Suspect]
     Indication: B-CELL LYMPHOMA
     Dosage: 300 M/J
     Route: 048
     Dates: start: 198810, end: 199003
  3. MABTHERA [Suspect]
     Indication: B-CELL LYMPHOMA
     Route: 042
     Dates: start: 20080627, end: 200907
  4. MABTHERA [Suspect]
     Indication: PRODUCT USED FOR UNKNOWN INDICATION
     Route: 042
     Dates: start: 20090908, end: 20091222
  5. MABTHERA [Suspect]
     Route: 042
     Dates: start: 201002, end: 20111027
  6. ADRIBLASTINE [Suspect]
     Indication: PRODUCT USED FOR UNKNOWN INDICATION
     Route: 042
     Dates: start: 20090908, end: 20091222
  7. VINCRISTINE SULFATE [Suspect]
     Indication: PRODUCT USED FOR UNKNOWN INDICATION
     Route: 042
     Dates: start: 20090908, end: 20091222
  8. CLIMENE [Concomitant]
     Indication: MENOPAUSE
     Route: 065
  9. PREVISCAN [Concomitant]
     Indication: THROMBOSIS
     Route: 065

REACTIONS (1)
  - Squamous cell carcinoma of the cervix [Not Recovered/Not Resolved]
